FAERS Safety Report 5488767-5 (Version None)
Quarter: 2007Q4

REPORT INFORMATION
  Report Type: 
  Country: None (occurrence: None)
  Receive Date: 20071017
  Receipt Date: 20071010
  Transmission Date: 20080405
  Serious: Yes (Hospitalization, Other)
  Sender: FDA-Public Use
  Company Number: US-PFIZER INC-2007085476

PATIENT
  Sex: Female
  Weight: 61.2 kg

DRUGS (2)
  1. XANAX [Suspect]
     Indication: ANXIETY
     Route: 048
  2. NEXIUM [Concomitant]

REACTIONS (8)
  - ABASIA [None]
  - ANXIETY [None]
  - DRUG WITHDRAWAL SYNDROME [None]
  - DYSPNOEA [None]
  - FEELING JITTERY [None]
  - HOSPITALISATION [None]
  - OESOPHAGEAL SPASM [None]
  - PLEURAL EFFUSION [None]
